FAERS Safety Report 10578380 (Version 8)
Quarter: 2016Q2

REPORT INFORMATION
  Report Type: Report from Study
  Country: CA (occurrence: CA)
  Receive Date: 20141112
  Receipt Date: 20160408
  Transmission Date: 20160815
  Serious: Yes (Hospitalization)
  Sender: FDA-Public Use
  Company Number: PHHY2014CA116723

PATIENT
  Age: 60 Year
  Sex: Female

DRUGS (1)
  1. SANDOSTATIN LAR DEPOT [Suspect]
     Active Substance: OCTREOTIDE ACETATE
     Indication: NEUROENDOCRINE TUMOUR
     Dosage: 30 MG, QMO (EVERY 4 WEEKS)
     Route: 030
     Dates: start: 20140512

REACTIONS (15)
  - Heart rate decreased [Unknown]
  - Small intestinal obstruction [Unknown]
  - Dehydration [Unknown]
  - Malaise [Unknown]
  - Pain [Unknown]
  - Female genital tract fistula [Unknown]
  - Procedural pain [Unknown]
  - Vomiting [Unknown]
  - Abdominal discomfort [Unknown]
  - Blood pressure systolic increased [Unknown]
  - Muscle spasms [Unknown]
  - Pneumonia [Unknown]
  - Abdominal pain upper [Unknown]
  - Dyspnoea [Unknown]
  - Diarrhoea [Not Recovered/Not Resolved]

NARRATIVE: CASE EVENT DATE: 2014
